FAERS Safety Report 13772075 (Version 2)
Quarter: 2018Q4

REPORT INFORMATION
  Report Type: Report from Study
  Country: US (occurrence: US)
  Receive Date: 20170720
  Receipt Date: 20181202
  Transmission Date: 20190204
  Serious: Yes (Death, Life-Threatening, Hospitalization, Other)
  Sender: FDA-Public Use
  Company Number: US-B.I. PHARMACEUTICALS,INC./RIDGEFIELD-2017-BI-040545

PATIENT
  Age: 62 Year
  Sex: Female

DRUGS (1)
  1. PRADAXA [Suspect]
     Active Substance: DABIGATRAN ETEXILATE MESYLATE
     Indication: ATRIAL FIBRILLATION
     Route: 065

REACTIONS (8)
  - Shock haemorrhagic [Fatal]
  - Drug level increased [Fatal]
  - Lactic acidosis [Fatal]
  - Coagulopathy [Unknown]
  - Mental status changes [Unknown]
  - Cardiogenic shock [Unknown]
  - Septic shock [Unknown]
  - Intestinal ischaemia [Fatal]
